FAERS Safety Report 8061360-6 (Version None)
Quarter: 2012Q1

REPORT INFORMATION
  Report Type: 
  Country: None (occurrence: None)
  Receive Date: 20120120
  Receipt Date: 20110829
  Transmission Date: 20120608
  Serious: No
  Sender: FDA-Public Use
  Company Number: US-ALLERGAN-1111526US

PATIENT
  Age: 88 Year
  Sex: Male

DRUGS (4)
  1. SYSTANE [Concomitant]
  2. RESTASIS [Suspect]
     Indication: DRY EYE
     Dosage: 2 GTT, BID
     Route: 047
     Dates: start: 20110601
  3. BLINK [Concomitant]
  4. REFRESH PLUS [Concomitant]

REACTIONS (1)
  - VISION BLURRED [None]
